FAERS Safety Report 13984978 (Version 2)
Quarter: 2017Q3

REPORT INFORMATION
  Report Type: Spontaneous
  Country: US (occurrence: US)
  Receive Date: 20170919
  Receipt Date: 20170921
  Transmission Date: 20171128
  Serious: Yes (Death, Other)
  Sender: FDA-Public Use
  Company Number: US-BRISTOL-MYERS SQUIBB COMPANY-BMS-2017-082445

PATIENT
  Age: 86 Year
  Sex: Female

DRUGS (3)
  1. LETROZOLE. [Concomitant]
     Active Substance: LETROZOLE
     Indication: NEOPLASM MALIGNANT
     Dosage: 2.5 MG, QD
     Route: 065
  2. ELIQUIS [Suspect]
     Active Substance: APIXABAN
     Indication: PRODUCT USED FOR UNKNOWN INDICATION
     Dosage: 5 MG, BID
     Route: 048
     Dates: start: 201611
  3. IBRANCE [Concomitant]
     Active Substance: PALBOCICLIB
     Indication: NEOPLASM MALIGNANT
     Route: 065

REACTIONS (2)
  - Death [Fatal]
  - Brain cancer metastatic [Unknown]

NARRATIVE: CASE EVENT DATE: 201706
